FAERS Safety Report 9778208 (Version 2)
Quarter: 2014Q1

REPORT INFORMATION
  Report Type: Spontaneous
  Country: US (occurrence: US)
  Receive Date: 20131223
  Receipt Date: 20140109
  Transmission Date: 20141002
  Serious: Yes (Hospitalization, Other)
  Sender: FDA-Public Use
  Company Number: US-JNJFOC-20131209599

PATIENT
  Sex: Female

DRUGS (22)
  1. TOPAMAX [Suspect]
     Indication: HEADACHE
     Dosage: INITIATED IN 2002 OR 2003 (TEN YEARS AGO)
     Route: 048
  2. TOPAMAX [Suspect]
     Indication: CONVULSION
     Dosage: INITIATED IN 2002 OR 2003 (TEN YEARS AGO)
     Route: 048
  3. TOPIRAMATE [Suspect]
     Indication: HEADACHE
     Route: 048
     Dates: start: 201312, end: 201312
  4. TOPIRAMATE [Suspect]
     Indication: HEADACHE
     Route: 048
  5. TOPIRAMATE [Suspect]
     Indication: CONVULSION
     Route: 048
  6. TOPIRAMATE [Suspect]
     Indication: CONVULSION
     Route: 048
     Dates: start: 201312, end: 201312
  7. PREDNISONE [Suspect]
     Indication: RESPIRATORY DISORDER
     Route: 048
     Dates: start: 201311
  8. BENADRYL [Concomitant]
     Indication: MULTIPLE ALLERGIES
     Dosage: AS NEEDED
     Route: 048
  9. MIRALAX [Concomitant]
     Indication: GASTRIC DISORDER
     Route: 048
  10. NICOTINE PATCH [Concomitant]
     Indication: SMOKING CESSATION THERAPY
     Dates: start: 20131208
  11. PRILOSEC [Concomitant]
     Indication: PRODUCT USED FOR UNKNOWN INDICATION
     Route: 048
  12. SINGULAIR [Concomitant]
     Indication: MULTIPLE ALLERGIES
     Route: 048
     Dates: start: 2012
  13. SYMBICORT [Concomitant]
     Indication: RESPIRATORY DISORDER
     Route: 055
     Dates: start: 201312
  14. ADVAIR [Concomitant]
     Indication: RESPIRATORY DISORDER
     Route: 065
     Dates: end: 201312
  15. ATIVAN [Concomitant]
     Indication: PRODUCT USED FOR UNKNOWN INDICATION
     Route: 048
  16. COLACE [Concomitant]
     Indication: PRODUCT USED FOR UNKNOWN INDICATION
     Route: 048
  17. BACLOFEN [Concomitant]
     Indication: HEADACHE
     Route: 048
  18. MOTRIN [Concomitant]
     Indication: HEADACHE
     Route: 048
  19. TYLENOL [Concomitant]
     Indication: PRODUCT USED FOR UNKNOWN INDICATION
     Route: 048
  20. ALBUTEROL [Concomitant]
     Indication: RESPIRATORY DISORDER
  21. IPRATROPIUM [Concomitant]
     Indication: PRODUCT USED FOR UNKNOWN INDICATION
     Route: 065
     Dates: start: 201312
  22. PEDIALYTE [Concomitant]
     Indication: ELECTROLYTE SUBSTITUTION THERAPY
     Route: 048

REACTIONS (22)
  - Convulsion [Recovered/Resolved]
  - Chest pain [Not Recovered/Not Resolved]
  - Dyspnoea [Not Recovered/Not Resolved]
  - Vomiting [Recovered/Resolved]
  - Personality change [Recovered/Resolved]
  - Mood swings [Recovered/Resolved]
  - Dysgeusia [Recovered/Resolved]
  - Dysgeusia [Recovered/Resolved]
  - Mood swings [Unknown]
  - Tremor [Recovered/Resolved]
  - Malaise [Recovered/Resolved]
  - Drug dispensing error [Unknown]
  - Oedema [Not Recovered/Not Resolved]
  - Product colour issue [Unknown]
  - Visual impairment [Recovered/Resolved]
  - Adverse drug reaction [Recovered/Resolved]
  - Product odour abnormal [Unknown]
  - Poor quality drug administered [Unknown]
  - Respiratory disorder [Not Recovered/Not Resolved]
  - Weight increased [Not Recovered/Not Resolved]
  - Viral infection [Unknown]
  - Inappropriate schedule of drug administration [Unknown]
